FAERS Safety Report 4453623-8 (Version None)
Quarter: 2004Q3

REPORT INFORMATION
  Report Type: 
  Country: None (occurrence: None)
  Receive Date: 20040920
  Receipt Date: 20040909
  Transmission Date: 20050211
  Serious: Yes (Other)
  Sender: FDA-Public Use
  Company Number: US-AMGEN-US090513

PATIENT
  Sex: Female

DRUGS (4)
  1. EPOGEN [Suspect]
     Indication: DIALYSIS
     Route: 042
     Dates: start: 20040501
  2. PREDNISONE [Concomitant]
  3. ZYRTEC [Concomitant]
  4. ALLEGRA [Concomitant]

REACTIONS (15)
  - CHEST PAIN [None]
  - CHILLS [None]
  - DYSPHAGIA [None]
  - HYPERSENSITIVITY [None]
  - HYPOTENSION [None]
  - PERIORBITAL OEDEMA [None]
  - PERITONEAL DIALYSIS [None]
  - PHARMACEUTICAL PRODUCT COMPLAINT [None]
  - PRURITUS [None]
  - PYREXIA [None]
  - RASH [None]
  - TACHYCARDIA [None]
  - THROAT IRRITATION [None]
  - URTICARIA GENERALISED [None]
  - WHEEZING [None]
